FAERS Safety Report 9512262 (Version 1)
Quarter: 2013Q3

REPORT INFORMATION
  Report Type: Spontaneous
  Country: FR (occurrence: FR)
  Receive Date: 20130910
  Receipt Date: 20130910
  Transmission Date: 20140515
  Serious: Yes (Hospitalization)
  Sender: FDA-Public Use
  Company Number: FR-NOVOPROD-386515

PATIENT
  Age: 76 Year
  Sex: Female

DRUGS (18)
  1. LEVEMIR FLEXPEN [Suspect]
     Dosage: UNK
     Route: 058
  2. BYETTA [Suspect]
     Indication: TYPE 2 DIABETES MELLITUS
     Dosage: 30 UG, QD
     Route: 058
     Dates: end: 20130608
  3. METFORMINE [Suspect]
     Indication: TYPE 2 DIABETES MELLITUS
     Dosage: UNK
     Route: 048
     Dates: end: 20130608
  4. DIAMICRON [Suspect]
     Dosage: 2 TAB, QD
     Route: 048
     Dates: end: 20130608
  5. APIDRA [Suspect]
     Dosage: 60 IU, QD
     Route: 058
  6. PANTOPRAZOLE [Concomitant]
  7. DOLIPRANE [Concomitant]
  8. SULFARLEM [Concomitant]
  9. DITROPAN [Concomitant]
  10. LORAZEPAM [Concomitant]
  11. AERIUS                             /01009701/ [Concomitant]
  12. BIPERIDYS [Concomitant]
  13. PAROXETINE [Concomitant]
  14. TARDYFERON [Concomitant]
  15. LOVENOX [Concomitant]
  16. DUROGESIC [Concomitant]
  17. TAHOR [Concomitant]
  18. COAPROVEL [Concomitant]

REACTIONS (4)
  - Malaise [Recovered/Resolved]
  - Attention deficit/hyperactivity disorder [Recovered/Resolved]
  - Hypoglycaemia [Recovered/Resolved]
  - Hyperglycaemia [Unknown]
